FAERS Safety Report 6645119-X (Version None)
Quarter: 2010Q1

REPORT INFORMATION
  Report Type: 
  Country: None (occurrence: None)
  Receive Date: 20100305
  Receipt Date: 20100222
  Transmission Date: 20100710
  Serious: No
  Sender: FDA-Public Use
  Company Number: 2010-00280

PATIENT
  Age: 56 Year
  Sex: Male
  Weight: 103.4201 kg

DRUGS (3)
  1. ZICAM COLD REMEDY RAPIDMELTS + VITAMIN C + ECHINACEA [Suspect]
     Dosage: QID - 2 DAYS
     Dates: start: 20100217, end: 20100219
  2. BENICAR [Concomitant]
  3. GLYPIZIDE [Concomitant]

REACTIONS (1)
  - AGEUSIA [None]
